FAERS Safety Report 6912766-7 (Version None)
Quarter: 2010Q3

REPORT INFORMATION
  Report Type: 
  Country: None (occurrence: None)
  Receive Date: 20100806
  Receipt Date: 20081105
  Transmission Date: 20110219
  Serious: No
  Sender: FDA-Public Use
  Company Number: US-PFIZER INC-2008090276

PATIENT
  Sex: Female

DRUGS (7)
  1. DETROL [Suspect]
     Indication: HYPERTONIC BLADDER
     Route: 048
     Dates: start: 20081017
  2. SYNTHROID [Concomitant]
  3. OXYBUTYNIN CHLORIDE [Concomitant]
  4. METOPROLOL [Concomitant]
  5. CRESTOR [Concomitant]
  6. TRICOR [Concomitant]
  7. MAGNESIUM OXIDE [Concomitant]

REACTIONS (4)
  - BLOOD MAGNESIUM DECREASED [None]
  - BLOOD POTASSIUM DECREASED [None]
  - DRUG INEFFECTIVE [None]
  - INAPPROPRIATE SCHEDULE OF DRUG ADMINISTRATION [None]
